FAERS Safety Report 8450688-3 (Version None)
Quarter: 2012Q2

REPORT INFORMATION
  Report Type: 
  Country: None (occurrence: None)
  Receive Date: 20120620
  Receipt Date: 20120517
  Transmission Date: 20120825
  Serious: No
  Sender: FDA-Public Use
  Company Number: US-ASTRAZENECA-2012SE32343

PATIENT
  Age: 62 Year
  Sex: Female
  Weight: 67.1 kg

DRUGS (3)
  1. PRILOSEC [Suspect]
     Indication: COLITIS ULCERATIVE
     Route: 048
     Dates: start: 20100101
  2. NEXIUM [Suspect]
     Indication: COLITIS ULCERATIVE
     Route: 048
     Dates: end: 20100101
  3. ASACOL [Concomitant]
     Indication: COLITIS

REACTIONS (3)
  - OFF LABEL USE [None]
  - INTENTIONAL DRUG MISUSE [None]
  - DRUG INEFFECTIVE FOR UNAPPROVED INDICATION [None]
